FAERS Safety Report 6686653-6 (Version None)
Quarter: 2010Q2

REPORT INFORMATION
  Report Type: 
  Country: None (occurrence: None)
  Receive Date: 20100416
  Receipt Date: 20100416
  Transmission Date: 20101027
  Serious: Yes (Other)
  Sender: FDA-Public Use
  Company Number: None

PATIENT
  Age: 11 Month
  Sex: Male
  Weight: 13 kg

DRUGS (2)
  1. ADVATE [Suspect]
     Indication: HAEMOPHILIA
     Dosage: 756 INTERNATIONAL UNITS EVERY FRIDAY IV BOLUS
     Route: 040
     Dates: start: 20100120, end: 20100210
  2. ADVATE [Suspect]
     Indication: PROPHYLAXIS
     Dosage: 357 INTERNATIONAL UNITS EVERY MON/WED IV BOLUS
     Route: 040
     Dates: start: 20100129, end: 20100210

REACTIONS (1)
  - INCORRECT DOSE ADMINISTERED [None]
